FAERS Safety Report 16393488 (Version 1)
Quarter: 2019Q2

REPORT INFORMATION
  Report Type: Spontaneous
  Country: US (occurrence: US)
  Receive Date: 20190430
  Receipt Date: 20190430
  Transmission Date: 20190711
  Serious: No
  Sender: FDA-Public Use
  Company Number: None

PATIENT
  Age: 62 Year
  Sex: Female
  Weight: 86.2 kg

DRUGS (10)
  1. OMEPRAZOLE. [Concomitant]
     Active Substance: OMEPRAZOLE
  2. TRAMADOL. [Concomitant]
     Active Substance: TRAMADOL
  3. FAMOTIDINE. [Concomitant]
     Active Substance: FAMOTIDINE
  4. HYDROCHLOROTHIAZIDE. [Concomitant]
     Active Substance: HYDROCHLOROTHIAZIDE
  5. PROPAFENONE. [Concomitant]
     Active Substance: PROPAFENONE
  6. PROCHLORPERZINE [Concomitant]
     Active Substance: PROCHLORPERAZINE
  7. LEVOTHYROXINE. [Concomitant]
     Active Substance: LEVOTHYROXINE
  8. ONDANSETRON [Concomitant]
     Active Substance: ONDANSETRON
  9. ANASTROZOLE. [Suspect]
     Active Substance: ANASTROZOLE
     Dates: end: 20161207
  10. ENOXAPARIN [Concomitant]
     Active Substance: ENOXAPARIN

REACTIONS (1)
  - Febrile neutropenia [None]

NARRATIVE: CASE EVENT DATE: 20170201
